FAERS Safety Report 13819568 (Version 1)
Quarter: 2017Q3

REPORT INFORMATION
  Report Type: Report from Study
  Country: US (occurrence: US)
  Receive Date: 20170731
  Receipt Date: 20170731
  Transmission Date: 20171127
  Serious: No
  Sender: FDA-Public Use
  Company Number: US-EXELIXIS-CABO-17008036

PATIENT
  Age: 65 Year
  Sex: Female

DRUGS (1)
  1. CABOMETYX [Suspect]
     Active Substance: CABOZANTINIB S-MALATE
     Indication: BRAIN NEOPLASM MALIGNANT
     Dosage: 60 MG, QD
     Route: 048
     Dates: start: 20170106

REACTIONS (6)
  - Constipation [Unknown]
  - Dizziness [Unknown]
  - Memory impairment [Unknown]
  - Decreased appetite [Unknown]
  - Off label use [Unknown]
  - Dry mouth [Unknown]
